FAERS Safety Report 8192739-X (Version None)
Quarter: 2012Q1

REPORT INFORMATION
  Report Type: 
  Country: None (occurrence: None)
  Receive Date: 20120308
  Receipt Date: 20120305
  Transmission Date: 20120608
  Serious: No
  Sender: FDA-Public Use
  Company Number: US-PFIZER INC-2012058804

PATIENT
  Sex: Male
  Weight: 104.31 kg

DRUGS (5)
  1. CELEBREX [Suspect]
     Indication: ARTHRITIS
     Dosage: 200 MG, 1X/DAY
     Route: 048
  2. ZOLPIDEM [Concomitant]
     Indication: CHONDROPATHY
     Dosage: 10 MG, 1X/DAY
  3. TRAMADOL [Concomitant]
     Indication: CHONDROPATHY
     Dosage: 50 MG, 2X/DAY
  4. CARDURA [Suspect]
     Indication: PROSTATOMEGALY
     Dosage: 8 MG, 1X/DAY
     Route: 048
  5. ZOLOFT [Suspect]
     Indication: DEPRESSION
     Dosage: 100 MG, 1X/DAY
     Route: 048

REACTIONS (3)
  - NERVOUSNESS [None]
  - ANXIETY [None]
  - ABDOMINAL DISCOMFORT [None]
